FAERS Safety Report 6277521-2 (Version None)
Quarter: 2009Q3

REPORT INFORMATION
  Report Type: 
  Country: None (occurrence: None)
  Receive Date: 20090722
  Receipt Date: 20070806
  Transmission Date: 20100115
  Serious: Yes (Hospitalization, Other)
  Sender: FDA-Public Use
  Company Number: US-ASTRAZENECA-2007UW02156

PATIENT
  Age: 512 Month
  Sex: Male
  Weight: 107.5 kg

DRUGS (17)
  1. SEROQUEL [Suspect]
     Indication: BIPOLAR DISORDER
     Dosage: 25-100 MG
     Route: 048
     Dates: start: 19990916, end: 20060301
  2. SEROQUEL [Suspect]
     Indication: SLEEP DISORDER
     Dosage: 25-100 MG
     Route: 048
     Dates: start: 19990916, end: 20060301
  3. SEROQUEL [Suspect]
     Indication: DEPRESSION
     Dosage: 25-100 MG
     Route: 048
     Dates: start: 19990916, end: 20060301
  4. SEROQUEL [Suspect]
     Route: 048
     Dates: start: 20060315
  5. SEROQUEL [Suspect]
     Route: 048
     Dates: start: 20060315
  6. SEROQUEL [Suspect]
     Route: 048
     Dates: start: 20060315
  7. RISPERDAL [Concomitant]
     Dates: start: 19990823
  8. RISPERDAL [Concomitant]
     Dates: start: 19990101
  9. RISPERDAL [Concomitant]
     Dates: start: 20031001, end: 20031201
  10. ZYPREXA [Concomitant]
     Dates: start: 20030901, end: 20031001
  11. LIPITOR [Concomitant]
  12. ZOLOFT [Concomitant]
     Indication: DEPRESSION
     Dosage: 25 TO 100 MG
     Dates: start: 19990916
  13. GLYBURIDE [Concomitant]
     Dates: start: 20051026, end: 20060830
  14. KLONOPIN [Concomitant]
     Dates: start: 19990916
  15. METFORMIN HCL [Concomitant]
     Dates: start: 20040406
  16. FLOVENT [Concomitant]
     Dosage: 220 MCG, 2 PUFFS TWICE A DAY
     Dates: start: 20020306
  17. NEURONTIN [Concomitant]
     Dates: start: 19990916

REACTIONS (7)
  - BILIARY COLIC [None]
  - BLOOD CHOLESTEROL INCREASED [None]
  - CHOLECYSTECTOMY [None]
  - CHOLECYSTITIS CHRONIC [None]
  - CHOLELITHIASIS [None]
  - CHOLESTEROSIS [None]
  - TYPE 2 DIABETES MELLITUS [None]
